FAERS Safety Report 20713739 (Version 1)
Quarter: 2022Q2

REPORT INFORMATION
  Report Type: Spontaneous
  Country: US (occurrence: None)
  Receive Date: 20220414
  Receipt Date: 20220414
  Transmission Date: 20220721
  Serious: Yes (Congenital Anomaly)
  Sender: FDA-Public Use
  Company Number: None

PATIENT
  Age: 33 Year
  Sex: Female
  Weight: 67.5 kg

DRUGS (1)
  1. BONJESTA [Suspect]
     Active Substance: DOXYLAMINE SUCCINATE\PYRIDOXINE HYDROCHLORIDE
     Indication: Morning sickness
     Dosage: OTHER QUANTITY : 60 TABLET(S);?FREQUENCY : DAILY;?
     Route: 048
     Dates: start: 20220118, end: 20220408

REACTIONS (3)
  - Maternal exposure during pregnancy [None]
  - Cleft lip and palate [None]
  - Congenital anomaly [None]

NARRATIVE: CASE EVENT DATE: 20220324
